FAERS Safety Report 7554814-X (Version None)
Quarter: 2011Q2

REPORT INFORMATION
  Report Type: 
  Country: None (occurrence: None)
  Receive Date: 20110617
  Receipt Date: 20110615
  Transmission Date: 20111010
  Serious: Yes (Hospitalization)
  Sender: FDA-Public Use
  Company Number: CHPA2011US08078

PATIENT
  Age: 87 Year
  Sex: Female
  Weight: 78.458 kg

DRUGS (1)
  1. VOLTAREN [Suspect]
     Indication: BACK PAIN
     Dosage: UNK, UP TO 2X/DAY
     Route: 061

REACTIONS (3)
  - OFF LABEL USE [None]
  - UPPER RESPIRATORY TRACT INFECTION [None]
  - DRUG ADMINISTERED AT INAPPROPRIATE SITE [None]
